FAERS Safety Report 15769890 (Version 1)
Quarter: 2018Q4

REPORT INFORMATION
  Report Type: Spontaneous
  Country: US (occurrence: US)
  Receive Date: 20181227
  Receipt Date: 20181227
  Transmission Date: 20190205
  Serious: Yes (Hospitalization)
  Sender: FDA-Public Use
  Company Number: None

PATIENT
  Age: 71 Year
  Sex: Male
  Weight: 79.1 kg

DRUGS (10)
  1. CHOLECALCIFEROL [Concomitant]
     Active Substance: CHOLECALCIFEROL
  2. CLOPIDOGREL BISULFATE. [Concomitant]
     Active Substance: CLOPIDOGREL BISULFATE
  3. LUPRON [Concomitant]
     Active Substance: LEUPROLIDE ACETATE
  4. PREDINSONE [Concomitant]
  5. ZYTIGA [Suspect]
     Active Substance: ABIRATERONE ACETATE
     Indication: BONE CANCER
     Route: 048
     Dates: start: 20181017, end: 20181212
  6. ASPIRIN. [Concomitant]
     Active Substance: ASPIRIN
  7. OMEGA 3 [Concomitant]
     Active Substance: OMEGA-3 FATTY ACIDS
  8. RANEXA [Concomitant]
     Active Substance: RANOLAZINE
  9. METOPROLOL. [Concomitant]
     Active Substance: METOPROLOL
  10. PROLIA [Concomitant]
     Active Substance: DENOSUMAB

REACTIONS (1)
  - Myalgia [None]

NARRATIVE: CASE EVENT DATE: 20181220
